FAERS Safety Report 6409494-3 (Version None)
Quarter: 2009Q4

REPORT INFORMATION
  Report Type: 
  Country: None (occurrence: None)
  Receive Date: 20091019
  Receipt Date: 20091009
  Transmission Date: 20100525
  Serious: Yes (Hospitalization)
  Sender: FDA-Public Use
  Company Number: IMP_04594_2009

PATIENT
  Age: 18 Year
  Sex: Female

DRUGS (8)
  1. BACLOFEN [Suspect]
     Indication: DRUG USE FOR UNKNOWN INDICATION
     Dosage: (225UG/DAY, 9.4 UG/HOUR, FOR 4 YEARS)
  2. DILAUDID [Concomitant]
  3. MORPHINE [Concomitant]
  4. CODEINE [Concomitant]
  5. ACETAMINOPHEN [Concomitant]
  6. DIPHENHYDRAMINE [Concomitant]
  7. AMBIEN [Concomitant]
  8. PROMETHAZINE [Concomitant]

REACTIONS (9)
  - BLOOD PRESSURE DECREASED [None]
  - DELIRIUM [None]
  - DRUG WITHDRAWAL SYNDROME [None]
  - DYSARTHRIA [None]
  - HALLUCINATION [None]
  - HEART RATE INCREASED [None]
  - MEDICAL DEVICE COMPLICATION [None]
  - SLEEP DISORDER [None]
  - XANTHOCHROMIA [None]
